FAERS Safety Report 8013609-3 (Version None)
Quarter: 2011Q4

REPORT INFORMATION
  Report Type: 
  Country: None (occurrence: None)
  Receive Date: 20111227
  Receipt Date: 20111227
  Transmission Date: 20120403
  Serious: Yes (Disabling)
  Sender: FDA-Public Use
  Company Number: None

PATIENT
  Sex: Male
  Weight: 99.7913 kg

DRUGS (4)
  1. HALOPERIDOL [Suspect]
     Indication: BIPOLAR I DISORDER
     Dosage: 5MG 4XDAY ORAL
     Route: 048
     Dates: start: 19980101, end: 20110101
  2. ZYPREXA [Suspect]
     Indication: ERECTILE DYSFUNCTION
     Dosage: 20MG ORAL
     Route: 048
     Dates: end: 20111215
  3. ZYPREXA [Suspect]
     Indication: DISTURBANCE IN ATTENTION
     Dosage: 20MG ORAL
     Route: 048
     Dates: end: 20111215
  4. LORAZEPAM [Concomitant]

REACTIONS (10)
  - GAIT DISTURBANCE [None]
  - ANGER [None]
  - DYSLEXIA [None]
  - MUSCLE SPASMS [None]
  - MANIA [None]
  - ILL-DEFINED DISORDER [None]
  - ERECTILE DYSFUNCTION [None]
  - BALANCE DISORDER [None]
  - DEPRESSION [None]
  - DISTURBANCE IN ATTENTION [None]
